FAERS Safety Report 8545164-3 (Version None)
Quarter: 2012Q3

REPORT INFORMATION
  Report Type: 
  Country: None (occurrence: None)
  Receive Date: 20120727
  Receipt Date: 20120718
  Transmission Date: 20120928
  Serious: Yes (Hospitalization, Other)
  Sender: FDA-Public Use
  Company Number: US-ELI_LILLY_AND_COMPANY-US201206007333

PATIENT
  Sex: Female
  Weight: 53 kg

DRUGS (3)
  1. HUMALOG [Suspect]
     Indication: TYPE 1 DIABETES MELLITUS
     Dosage: UNK
     Dates: start: 19990101
  2. LANTUS [Concomitant]
     Indication: TYPE 1 DIABETES MELLITUS
     Dosage: 34 U, QD
     Route: 058
     Dates: start: 19990101
  3. HUMALOG [Suspect]
     Dosage: UNK UNK, PRN

REACTIONS (20)
  - EYE OPERATION [None]
  - DIZZINESS [None]
  - CONVULSION [None]
  - DYSARTHRIA [None]
  - FEMUR FRACTURE [None]
  - HOSPITALISATION [None]
  - TOOTH INJURY [None]
  - FALL [None]
  - HIP FRACTURE [None]
  - DECREASED APPETITE [None]
  - VERTIGO [None]
  - MOOD ALTERED [None]
  - MYOCARDIAL INFARCTION [None]
  - HUNGER [None]
  - HEART RATE INCREASED [None]
  - ANXIETY [None]
  - VOMITING [None]
  - VISION BLURRED [None]
  - BLOOD GLUCOSE ABNORMAL [None]
  - VISUAL ACUITY REDUCED [None]
